FAERS Safety Report 9838939 (Version 1)
Quarter: 2014Q1

REPORT INFORMATION
  Report Type: Spontaneous
  Country: US (occurrence: US)
  Receive Date: 20140123
  Receipt Date: 20140123
  Transmission Date: 20141002
  Serious: Yes (Death, Hospitalization)
  Sender: FDA-Public Use
  Company Number: US-B.I. PHARMACEUTICALS,INC./RIDGEFIELD-2014-BI-03018BP

PATIENT
  Sex: Male

DRUGS (1)
  1. PRADAXA [Suspect]
     Dates: start: 201204

REACTIONS (4)
  - Gastrointestinal haemorrhage [Fatal]
  - Respiratory failure [Fatal]
  - Coagulopathy [Fatal]
  - International normalised ratio increased [Fatal]
